FAERS Safety Report 9360503 (Version 2)
Quarter: 2014Q1

REPORT INFORMATION
  Report Type: Spontaneous
  Country: BR (occurrence: BR)
  Receive Date: 20130621
  Receipt Date: 20140107
  Transmission Date: 20141002
  Serious: Yes (Life-Threatening, Hospitalization, Other)
  Sender: FDA-Public Use
  Company Number: BR-JNJFOC-20130610414

PATIENT
  Age: 50 Year
  Sex: Female

DRUGS (2)
  1. XARELTO [Suspect]
     Indication: LIPOSUCTION
     Route: 048
     Dates: start: 20130219, end: 20130222
  2. XARELTO [Suspect]
     Indication: ABDOMINOPLASTY
     Route: 048
     Dates: start: 20130219, end: 20130222

REACTIONS (11)
  - Intra-abdominal haemorrhage [Unknown]
  - Haemodynamic instability [Unknown]
  - Hypotension [Unknown]
  - Atelectasis [Unknown]
  - Anaemia [Unknown]
  - Malaise [Unknown]
  - Off label use [Unknown]
  - Peripheral coldness [Unknown]
  - Cyanosis [Unknown]
  - Pallor [Unknown]
  - Haematoma [Not Recovered/Not Resolved]
